FAERS Safety Report 4393265-6 (Version None)
Quarter: 2004Q3

REPORT INFORMATION
  Report Type: 
  Country: None (occurrence: None)
  Receive Date: 20040701
  Receipt Date: 20040610
  Transmission Date: 20050211
  Serious: Yes (Hospitalization)
  Sender: FDA-Public Use
  Company Number: CA_040506939

PATIENT
  Sex: Male

DRUGS (10)
  1. HUMULIN N [Suspect]
     Indication: DIABETES MELLITUS
     Dosage: 45 U IN THE MORNING
  2. HUMALOG [Suspect]
     Indication: DIABETES MELLITUS
     Dosage: 10 U DAY
  3. CELEXA [Concomitant]
  4. PREVACID [Concomitant]
  5. INDURGAN (OMEPRAZOLE) [Concomitant]
  6. ALTACE [Concomitant]
  7. APO-DILTIAZ CD (DILTIAZEM HYDROCHLORIDE) [Concomitant]
  8. PLAVIX [Concomitant]
  9. LIPITOR [Concomitant]
  10. ZITHROMAX [Concomitant]

REACTIONS (5)
  - DIABETES MELLITUS INADEQUATE CONTROL [None]
  - DIABETIC COMA [None]
  - MEDICATION ERROR [None]
  - MEMORY IMPAIRMENT [None]
  - PHARMACEUTICAL PRODUCT COMPLAINT [None]
